FAERS Safety Report 5187370-4 (Version None)
Quarter: 2006Q4

REPORT INFORMATION
  Report Type: 
  Country: None (occurrence: None)
  Receive Date: 20061220
  Receipt Date: 20060406
  Transmission Date: 20070319
  Serious: No
  Sender: FDA-Public Use
  Company Number: US-AMGEN-US175429

PATIENT
  Sex: Female

DRUGS (3)
  1. ENBREL [Suspect]
     Indication: PSORIASIS
     Route: 058
     Dates: start: 20040101
  2. DOVONEX [Concomitant]
     Dates: start: 20051215
  3. TRIAMCINOLONE [Concomitant]
     Dates: start: 20051215

REACTIONS (1)
  - DRUG INEFFECTIVE [None]
